FAERS Safety Report 8438880-5 (Version None)
Quarter: 2012Q2

REPORT INFORMATION
  Report Type: 
  Country: None (occurrence: None)
  Receive Date: 20120615
  Receipt Date: 20120605
  Transmission Date: 20120825
  Serious: Yes (Other)
  Sender: FDA-Public Use
  Company Number: CA-JNJFOC-20120603010

PATIENT
  Sex: Male
  Weight: 91.2 kg

DRUGS (5)
  1. REMICADE [Suspect]
     Indication: COLITIS ULCERATIVE
     Dosage: 35 INFUSIONS TO PRESENT
     Route: 042
  2. NEXIUM [Concomitant]
  3. MESALAMINE [Concomitant]
  4. IMURAN [Concomitant]
  5. DOXYCYCLINE [Concomitant]

REACTIONS (1)
  - VOCAL CORD NEOPLASM [None]
